FAERS Safety Report 14915725 (Version 12)
Quarter: 2019Q3

REPORT INFORMATION
  Report Type: Report from Study
  Country: US (occurrence: US)
  Receive Date: 20180518
  Receipt Date: 20190801
  Transmission Date: 20191004
  Serious: Yes (Death, Hospitalization)
  Sender: FDA-Public Use
  Company Number: US-ACTELION-A-NJ2018-165198

PATIENT
  Age: 72 Year
  Sex: Male
  Weight: 84.81 kg

DRUGS (8)
  1. OPSUMIT [Suspect]
     Active Substance: MACITENTAN
     Indication: PULMONARY HYPERTENSION
     Dosage: 10 MG, QD
     Route: 048
  2. VELETRI [Suspect]
     Active Substance: EPOPROSTENOL
     Dosage: 20 NG/KG, PER MIN
     Route: 042
     Dates: start: 201706
  3. VELETRI [Suspect]
     Active Substance: EPOPROSTENOL
     Dosage: 21.5 NG/KG, PER MIN
     Route: 042
  4. VELETRI [Suspect]
     Active Substance: EPOPROSTENOL
     Indication: PULMONARY HYPERTENSION
     Dosage: 30 NG/KG, PER MIN
     Route: 042
  5. OPSUMIT [Suspect]
     Active Substance: MACITENTAN
     Dosage: 10 MG, QD
     Route: 048
  6. VELETRI [Suspect]
     Active Substance: EPOPROSTENOL
     Dosage: 23 NG/KG, PER MIN
     Route: 042
  7. VELETRI [Suspect]
     Active Substance: EPOPROSTENOL
     Dosage: 21 NG/KG, PER MIN
     Route: 042
  8. PLAVIX [Concomitant]
     Active Substance: CLOPIDOGREL BISULFATE

REACTIONS (31)
  - Stress [Unknown]
  - Cough [Unknown]
  - Headache [Unknown]
  - Pain [Unknown]
  - Neuralgia [Unknown]
  - Catheter site discharge [Recovered/Resolved]
  - Chest discomfort [Unknown]
  - Dyspnoea [Recovering/Resolving]
  - Nervousness [Unknown]
  - Device leakage [Unknown]
  - Flushing [Unknown]
  - Musculoskeletal pain [Unknown]
  - Axillary pain [Unknown]
  - Myocardial infarction [Fatal]
  - Oxygen saturation decreased [Unknown]
  - Feeling abnormal [Unknown]
  - Back pain [Unknown]
  - General physical health deterioration [Unknown]
  - Dyspnoea exertional [Not Recovered/Not Resolved]
  - Hypoacusis [Unknown]
  - Pulmonary oedema [Unknown]
  - Accidental underdose [Unknown]
  - Nausea [Unknown]
  - Therapy non-responder [Unknown]
  - Insomnia [Unknown]
  - Device issue [Recovered/Resolved]
  - Adverse reaction [Unknown]
  - Anxiety [Unknown]
  - Device dislocation [Unknown]
  - Chest pain [Unknown]
  - Herpes zoster [Unknown]

NARRATIVE: CASE EVENT DATE: 20171220
